FAERS Safety Report 9743308 (Version 1)
Quarter: 2013Q4

REPORT INFORMATION
  Report Type: Spontaneous
  Country: US (occurrence: US)
  Receive Date: 20131210
  Receipt Date: 20131210
  Transmission Date: 20140711
  Serious: No
  Sender: FDA-Public Use
  Company Number: US-BAYER-2013-149310

PATIENT
  Age: 19 Year
  Sex: Female

DRUGS (2)
  1. ALEVE CAPLET [Suspect]
     Indication: INFLAMMATION
     Dosage: 1 DF, QD
     Route: 048
     Dates: start: 20131127, end: 20131130
  2. ALEVE CAPLET [Suspect]
     Indication: INFLAMMATION
     Dosage: 1 DF, BID FOR 1 DAY
     Route: 048

REACTIONS (2)
  - Off label use [None]
  - Urticaria [Not Recovered/Not Resolved]
